FAERS Safety Report 7298458-6 (Version None)
Quarter: 2011Q1

REPORT INFORMATION
  Report Type: 
  Country: None (occurrence: None)
  Receive Date: 20110107
  Receipt Date: 20101208
  Transmission Date: 20110831
  Serious: Yes (Other)
  Sender: FDA-Public Use
  Company Number: 2010-01163

PATIENT
  Age: 72 Year
  Sex: Female

DRUGS (10)
  1. ASPIRIN [Concomitant]
  2. FUROSEMIDE (UNKNOWN) [Suspect]
     Indication: HYPERTENSION
     Dosage: DOSE REDUCED
  3. DIAZEPAM (UNKNOWN) [Concomitant]
  4. RAMIPRIL [Suspect]
     Indication: HYPERTENSION
     Dosage: DOSE REDUCED
  5. AMLODIPINE [Suspect]
     Indication: HYPERTENSION
     Dosage: DOSE REDUCED
  6. ATORVASTATIN (UNKNOWN) [Concomitant]
  7. PAROXETINE (UNKNOWN) [Concomitant]
  8. PROCLORPERAZINE (UNKNOWN) [Concomitant]
  9. SOTALOL (UNKNOWN) [Suspect]
     Indication: HYPERTENSION
     Dosage: DOSE REDUCED
  10. CO-PROXAMOL (UNKNOWN) [Concomitant]

REACTIONS (5)
  - MUSCLE TWITCHING [None]
  - BLOOD PRESSURE DECREASED [None]
  - CAROTID ARTERY OCCLUSION [None]
  - TRANSIENT ISCHAEMIC ATTACK [None]
  - HEMIPARESIS [None]
